FAERS Safety Report 11364176 (Version 1)
Quarter: 2015Q3

REPORT INFORMATION
  Report Type: Spontaneous
  Country: US (occurrence: US)
  Receive Date: 20150811
  Receipt Date: 20150811
  Transmission Date: 20151125
  Serious: Yes (Hospitalization)
  Sender: FDA-Public Use
  Company Number: US-ELI_LILLY_AND_COMPANY-US201507011091

PATIENT
  Sex: Male

DRUGS (2)
  1. NEXIUM [Concomitant]
     Active Substance: ESOMEPRAZOLE MAGNESIUM
  2. EFFIENT [Suspect]
     Active Substance: PRASUGREL HYDROCHLORIDE
     Indication: STENT PLACEMENT
     Dosage: 10 MG, QD
     Route: 048
     Dates: start: 201506

REACTIONS (1)
  - Blood sodium decreased [Recovered/Resolved]
